FAERS Safety Report 13348689 (Version 2)
Quarter: 2017Q4

REPORT INFORMATION
  Report Type: Spontaneous
  Country: DE (occurrence: DE)
  Receive Date: 20170320
  Receipt Date: 20171120
  Transmission Date: 20180320
  Serious: Yes (Other)
  Sender: FDA-Public Use
  Company Number: DE-BRISTOL-MYERS SQUIBB COMPANY-BMS-2017-004331

PATIENT
  Sex: Female
  Weight: 70 kg

DRUGS (1)
  1. HYDREA [Suspect]
     Active Substance: HYDROXYUREA
     Indication: POLYCYTHAEMIA
     Dosage: 500 MG, TID
     Route: 048

REACTIONS (6)
  - Nausea [Unknown]
  - Alopecia [Unknown]
  - Skin injury [Unknown]
  - Irritability [Unknown]
  - Product friable [Unknown]
  - Skin atrophy [Unknown]
